FAERS Safety Report 21578721 (Version 1)
Quarter: 2022Q4

REPORT INFORMATION
  Report Type: Report from Study
  Country: US (occurrence: US)
  Receive Date: 20221110
  Receipt Date: 20221110
  Transmission Date: 20230112
  Serious: Yes (Other)
  Sender: FDA-Public Use
  Company Number: US-BRISTOL-MYERS SQUIBB COMPANY-2022-023164

PATIENT
  Age: 69 Year
  Sex: Male
  Weight: 107.05 kg

DRUGS (27)
  1. POMALYST [Suspect]
     Active Substance: POMALIDOMIDE
     Indication: Plasma cell myeloma
     Route: 048
  2. POMALYST [Suspect]
     Active Substance: POMALIDOMIDE
     Dosage: FREQ: DAILY ON 1-14 DAYS OF 28 DAY CYCLE
     Route: 048
  3. POMALYST [Suspect]
     Active Substance: POMALIDOMIDE
     Dosage: 14 OUT OF 28 DAYS
     Route: 048
  4. DEXAMETHASONE [Concomitant]
     Active Substance: DEXAMETHASONE
  5. VELCADE [Concomitant]
     Active Substance: BORTEZOMIB
  6. ACYCLOVIR [Concomitant]
     Active Substance: ACYCLOVIR
  7. ELIQUIS [Concomitant]
     Active Substance: APIXABAN
  8. METOPROLOL SUCCINATE [Concomitant]
     Active Substance: METOPROLOL SUCCINATE
  9. POTASSIUM [Concomitant]
     Active Substance: POTASSIUM
  10. VITAMIN B COMPLEX [Concomitant]
     Active Substance: CYANOCOBALAMIN\DEXPANTHENOL\NIACINAMIDE\PYRIDOXINE HYDROCHLORIDE\RIBOFLAVIN 5^-PHOSPHATE SODIUM\THIA
  11. MAGNESIUM [Concomitant]
     Active Substance: MAGNESIUM
  12. DIGOXIN [Concomitant]
     Active Substance: DIGOXIN
  13. VITAMIN C [Concomitant]
     Active Substance: ASCORBIC ACID
  14. ALBUTEROL SULFATE [Concomitant]
     Active Substance: ALBUTEROL SULFATE
  15. ALLEGRA [Concomitant]
     Active Substance: FEXOFENADINE HYDROCHLORIDE
  16. DARZALEX [Concomitant]
     Active Substance: DARATUMUMAB
  17. XGEVA [Concomitant]
     Active Substance: DENOSUMAB
  18. VITAMIN B12 [Concomitant]
     Active Substance: CYANOCOBALAMIN
  19. MAGNESIUM [Concomitant]
     Active Substance: MAGNESIUM
  20. VITAMIN D3 [Concomitant]
     Active Substance: CHOLECALCIFEROL
  21. TRAMADOL [Concomitant]
     Active Substance: TRAMADOL
  22. CALCIUM [Concomitant]
     Active Substance: CALCIUM
  23. LASIX [Concomitant]
     Active Substance: FUROSEMIDE
  24. OXYCODONE [Concomitant]
     Active Substance: OXYCODONE
  25. CULTURELLE [Concomitant]
     Active Substance: LACTOBACILLUS RHAMNOSUS
  26. ACETAMINOPHEN [Concomitant]
     Active Substance: ACETAMINOPHEN
  27. ZINC [Concomitant]
     Active Substance: ZINC

REACTIONS (7)
  - Diarrhoea [Recovered/Resolved]
  - Full blood count decreased [Unknown]
  - Dyspnoea [Unknown]
  - Fatigue [Unknown]
  - COVID-19 [Recovered/Resolved]
  - Heart rate irregular [Recovered/Resolved]
  - Off label use [Unknown]

NARRATIVE: CASE EVENT DATE: 20221019
